FAERS Safety Report 11050417 (Version 2)
Quarter: 2015Q2

REPORT INFORMATION
  Report Type: Spontaneous
  Country: NL (occurrence: NL)
  Receive Date: 20150421
  Receipt Date: 20150430
  Transmission Date: 20150821
  Serious: Yes (Life-Threatening, Hospitalization)
  Sender: FDA-Public Use
  Company Number: NL-ASTRAZENECA-2015SE34708

PATIENT
  Age: 72 Year
  Sex: Male
  Weight: 65 kg

DRUGS (4)
  1. SIMVASTATINE [Concomitant]
     Active Substance: SIMVASTATIN
     Route: 048
  2. ACETYLSALICYLZUUR [Concomitant]
     Route: 048
  3. IRBESARTAN/HYDROCHLOORTHIAZIDE [Concomitant]
     Dosage: 300/12,5MG, 1 DF DAILY
     Route: 048
     Dates: end: 20150330
  4. ESOMEPRAZOL [Suspect]
     Active Substance: ESOMEPRAZOLE
     Indication: DYSPEPSIA
     Route: 048
     Dates: start: 201410, end: 20150330

REACTIONS (4)
  - Seizure [Recovering/Resolving]
  - Hypocalcaemia [Recovering/Resolving]
  - Hypomagnesaemia [Recovering/Resolving]
  - Hypokalaemia [Recovering/Resolving]

NARRATIVE: CASE EVENT DATE: 20150330
